FAERS Safety Report 8199711-4 (Version None)
Quarter: 2012Q1

REPORT INFORMATION
  Report Type: 
  Country: None (occurrence: None)
  Receive Date: 20120311
  Receipt Date: 20120227
  Transmission Date: 20120608
  Serious: Yes (Hospitalization, Other)
  Sender: FDA-Public Use
  Company Number: PHHY2011JP112561

PATIENT
  Sex: Female

DRUGS (9)
  1. NORVASC [Concomitant]
     Indication: HYPERTENSION
     Dosage: 10 MG, UNK
     Route: 048
     Dates: start: 20090223
  2. ISOSORBIDE DINITRATE [Concomitant]
     Dosage: 1 DF, TID
     Route: 065
     Dates: start: 20091224
  3. DIOVAN [Concomitant]
     Indication: HYPERTENSION
     Dosage: 80 MG, UNK
     Route: 048
     Dates: start: 20100727, end: 20101018
  4. EXFORGE [Concomitant]
     Indication: HYPERTENSION
     Dosage: 1 DF, UNK
     Route: 048
     Dates: start: 20101019
  5. RASILEZ [Concomitant]
     Indication: HYPERTENSION
     Dosage: 150 MG, UNK
     Route: 048
     Dates: start: 20100712, end: 20110204
  6. CARVEDILOL [Concomitant]
     Indication: HYPERTENSION
     Dosage: 5 MG, UNK
     Route: 048
     Dates: start: 20090223
  7. DIOVAN HCT [Suspect]
     Indication: HYPERTENSION
     Dosage: 1 DF, DAILY
     Route: 048
     Dates: start: 20100621, end: 20101216
  8. ASPIRIN [Concomitant]
     Dosage: 100 MG, UNK
     Route: 048
     Dates: start: 20090223
  9. KREMEZIN [Concomitant]
     Dosage: 4 G, UNK
     Route: 048
     Dates: start: 20090722

REACTIONS (8)
  - NAUSEA [None]
  - RENAL FAILURE [None]
  - CONDITION AGGRAVATED [None]
  - HYPOPHAGIA [None]
  - BLOOD PRESSURE DECREASED [None]
  - BLOOD PRESSURE FLUCTUATION [None]
  - NUTRITIONAL CONDITION ABNORMAL [None]
  - GAMMA-GLUTAMYLTRANSFERASE INCREASED [None]
